FAERS Safety Report 16261466 (Version 3)
Quarter: 2019Q2

REPORT INFORMATION
  Report Type: Spontaneous
  Country: US (occurrence: US)
  Receive Date: 20190501
  Receipt Date: 20190509
  Transmission Date: 20190711
  Serious: Yes (Other)
  Sender: FDA-Public Use
  Company Number: US-PFIZER INC-2019124836

PATIENT
  Sex: Female
  Weight: 97.52 kg

DRUGS (2)
  1. PREMARIN [Suspect]
     Active Substance: ESTROGENS, CONJUGATED
     Indication: ATROPHIC VULVOVAGINITIS
     Dosage: 1 G, 2X/WEEK
     Route: 067
  2. PREMARIN [Suspect]
     Active Substance: ESTROGENS, CONJUGATED
     Dosage: 1 G, WEEKLY(1 GRAM ONCE A WEEK)
     Route: 067

REACTIONS (9)
  - Arthritis [Unknown]
  - Condition aggravated [Unknown]
  - Feeling abnormal [Unknown]
  - Nervousness [Unknown]
  - Foot deformity [Unknown]
  - Anxiety [Unknown]
  - Pain in extremity [Unknown]
  - Product use issue [Unknown]
  - Contraindicated product administered [Unknown]
